FAERS Safety Report 7959767-8 (Version None)
Quarter: 2011Q4

REPORT INFORMATION
  Report Type: 
  Country: None (occurrence: None)
  Receive Date: 20111206
  Receipt Date: 20111129
  Transmission Date: 20120403
  Serious: Yes (Hospitalization)
  Sender: FDA-Public Use
  Company Number: IT-GLAXOSMITHKLINE-B0767292A

PATIENT
  Sex: Female

DRUGS (6)
  1. LANOXIN [Suspect]
     Indication: ATRIAL FIBRILLATION
     Dosage: .0625MG PER DAY
     Route: 048
     Dates: start: 20080101, end: 20110902
  2. LORATADINA [Concomitant]
     Indication: URTICARIA CHRONIC
     Dosage: 10MG PER DAY
     Route: 048
  3. BISOPROLOL FUMARATE [Suspect]
     Indication: CARDIAC FAILURE
     Dosage: .5UNIT PER DAY
     Route: 048
     Dates: start: 20080101, end: 20110902
  4. FUROSEMIDE [Concomitant]
     Indication: CARDIAC FAILURE
     Dosage: 50MG PER DAY
     Route: 048
  5. ALDACTONE [Concomitant]
     Indication: CARDIAC FAILURE
     Route: 048
  6. OMEPRAZOLE [Concomitant]
     Indication: PROPHYLAXIS
     Dosage: 20MG PER DAY
     Route: 048

REACTIONS (1)
  - BRADYARRHYTHMIA [None]
